FAERS Safety Report 12267489 (Version 2)
Quarter: 2017Q1

REPORT INFORMATION
  Report Type: Spontaneous
  Country: US (occurrence: US)
  Receive Date: 20160414
  Receipt Date: 20170105
  Transmission Date: 20170428
  Serious: No
  Sender: FDA-Public Use
  Company Number: US-PFIZER INC-2016167973

PATIENT
  Sex: Male

DRUGS (3)
  1. LYRICA [Suspect]
     Active Substance: PREGABALIN
     Indication: DIABETIC NEUROPATHY
     Dosage: 75 UNK, UNK
  2. LYRICA [Suspect]
     Active Substance: PREGABALIN
     Dosage: 200 UNK, UNK
  3. LYRICA [Suspect]
     Active Substance: PREGABALIN
     Dosage: 100 UNK, UNK

REACTIONS (4)
  - Muscle twitching [Recovering/Resolving]
  - Drug ineffective [Unknown]
  - Drug dose omission [Unknown]
  - Gait disturbance [Unknown]
